FAERS Safety Report 4403991-8 (Version None)
Quarter: 2004Q3

REPORT INFORMATION
  Report Type: 
  Country: None (occurrence: None)
  Receive Date: 20040719
  Receipt Date: 20040709
  Transmission Date: 20050211
  Serious: Yes (Other)
  Sender: FDA-Public Use
  Company Number: 200409103

PATIENT
  Age: 41 Year
  Sex: Male

DRUGS (5)
  1. STREPTOKINASE (STREPTOKINASE) (UNKNOWN) [Suspect]
     Indication: ACUTE MYOCARDIAL INFARCTION
     Dosage: 75 MG DAILY PO
     Route: 048
     Dates: start: 20040501
  2. ASPIRIN [Suspect]
     Indication: ACUTE MYOCARDIAL INFARCTION
     Dosage: 75 MG DAILY PO
     Route: 048
     Dates: start: 20040501
  3. ENOXAPARIN OR PLACEBO VS. HEPARIN OR PLACEBO [Suspect]
     Indication: ACUTE MYOCARDIAL INFARCTION
     Dosage: IV
     Route: 042
     Dates: start: 20040501, end: 20040506
  4. CLOPIDOGREL [Suspect]
     Dosage: 75 MG DAILY PO
     Route: 048
     Dates: start: 20040501, end: 20040512
  5. ATORVASTATIN CALCIUM [Concomitant]

REACTIONS (1)
  - THROMBOCYTOPENIA [None]
